FAERS Safety Report 8130586-5 (Version None)
Quarter: 2012Q1

REPORT INFORMATION
  Report Type: 
  Country: None (occurrence: None)
  Receive Date: 20120212
  Receipt Date: 20120131
  Transmission Date: 20120608
  Serious: Yes (Hospitalization)
  Sender: FDA-Public Use
  Company Number: JP-ASTRAZENECA-2012SE07688

PATIENT
  Age: 71 Year
  Sex: Male
  Weight: 48 kg

DRUGS (44)
  1. ONON [Concomitant]
     Indication: ASTHMA
     Dosage: DOSE UNKNOWN
     Route: 048
  2. LEVOFLOXACIN [Concomitant]
     Indication: BRONCHITIS
     Dosage: REGULAR USE NUMBER OF SEPARATE DOSAGES UNKNOWN
     Route: 048
     Dates: start: 20101204, end: 20101206
  3. PREDNISOLONE [Concomitant]
     Dosage: REGULAR USE NUMBER OF SEPARATE DOSAGES UNKNOWN
     Route: 048
     Dates: start: 20110106, end: 20110111
  4. METHYLPREDNISOLONE SODIUM SUCCINATE [Concomitant]
     Dosage: REGULAR USE NUMBER OF SEPARATE DOSAGES UNKNOWN
     Route: 065
     Dates: start: 20110714, end: 20110714
  5. METHYLPREDNISOLONE SODIUM SUCCINATE [Concomitant]
     Dosage: REGULAR USE NUMBER OF SEPARATE DOSAGES UNKNOWN
     Route: 065
     Dates: start: 20110811, end: 20110813
  6. ROCEPHIN [Concomitant]
     Indication: BRONCHITIS
     Dosage: REGULAR USE NUMBER OF SEPARATE DOSAGES UNKNOWN
     Route: 065
     Dates: start: 20110714, end: 20110720
  7. SYMBICORT [Suspect]
     Indication: ASTHMA
     Dosage: 4DF TWO TIMES A DAY
     Route: 055
     Dates: start: 20100902
  8. RABEPRAZOLE SODIUM [Concomitant]
     Indication: PEPTIC ULCER
     Dosage: DOSE UNKNOWN
     Route: 048
  9. METHYLPREDNISOLONE SODIUM SUCCINATE [Concomitant]
     Dosage: REGULAR USE NUMBER OF SEPARATE DOSAGES UNKNOWN
     Route: 065
     Dates: start: 20110715, end: 20110725
  10. ROCEPHIN [Concomitant]
     Dosage: REGULAR USE NUMBER OF SEPARATE DOSAGES UNKNOWN
     Route: 065
     Dates: start: 20110801, end: 20110811
  11. MUCOSTA [Concomitant]
     Indication: PEPTIC ULCER
     Dosage: DOSE UNKNOWN
     Route: 048
  12. METHYLPREDNISOLONE SODIUM SUCCINATE [Concomitant]
     Indication: ASTHMA
     Dosage: REGULAR USE NUMBER OF SEPARATE DOSAGES UNKNOWN
     Route: 065
     Dates: start: 20110106, end: 20110106
  13. ZITHROMAX [Concomitant]
     Indication: PNEUMONIA
     Dosage: REGULAR USE NUMBER OF SEPARATE DOSAGES UNKNOWN
     Route: 048
     Dates: start: 20110811, end: 20110811
  14. PREDNISOLONE [Concomitant]
     Dosage: REGULAR USE NUMBER OF SEPARATE DOSAGES UNKNOWN
     Route: 048
     Dates: start: 20110106, end: 20110111
  15. PREDNISOLONE [Concomitant]
     Dosage: REGULAR USE NUMBER OF SEPARATE DOSAGES UNKNOWN
     Route: 048
     Dates: start: 20110816, end: 20110824
  16. FAMOTIDINE [Concomitant]
     Indication: PROPHYLAXIS AGAINST GASTROINTESTINAL ULCER
     Dosage: REGULAR USE NUMBER OF SEPARATE DOSAGES UNKNOWN
     Route: 048
     Dates: start: 20101209, end: 20101211
  17. METHYLPREDNISOLONE SODIUM SUCCINATE [Concomitant]
     Dosage: REGULAR USE NUMBER OF SEPARATE DOSAGES UNKNOWN
     Route: 065
     Dates: start: 20110714, end: 20110714
  18. SPIRIVA [Concomitant]
     Indication: CHRONIC OBSTRUCTIVE PULMONARY DISEASE
     Dosage: DOSE UNKNOWN
     Route: 055
  19. DEXTROMETHORPHAN HYDROBROMIDE [Concomitant]
     Indication: CHRONIC OBSTRUCTIVE PULMONARY DISEASE
     Dosage: DOSE UNKNOWN
     Route: 048
  20. THEO-DUR [Concomitant]
     Indication: ASTHMA
     Dosage: DOSE UNKNOWN
     Route: 048
  21. UNIPHYL LA [Concomitant]
     Indication: ASTHMA
     Dosage: DOSE UNKNOWN
     Route: 048
  22. PREDNISOLONE [Concomitant]
     Indication: ASTHMA
     Dosage: REGULAR USE NUMBER OF SEPARATE DOSAGES UNKNOWN
     Route: 048
     Dates: start: 20101209, end: 20101211
  23. PREDNISOLONE [Concomitant]
     Dosage: REGULAR USE NUMBER OF SEPARATE DOSAGES UNKNOWN
     Route: 048
     Dates: start: 20110825, end: 20110905
  24. METHYLPREDNISOLONE SODIUM SUCCINATE [Concomitant]
     Dosage: REGULAR USE NUMBER OF SEPARATE DOSAGES UNKNOWN
     Route: 065
     Dates: start: 20110715, end: 20110725
  25. METHYLPREDNISOLONE SODIUM SUCCINATE [Concomitant]
     Dosage: REGULAR USE NUMBER OF SEPARATE DOSAGES UNKNOWN
     Route: 065
     Dates: start: 20110811, end: 20110813
  26. MEROPENEM [Concomitant]
     Indication: PNEUMONIA
     Dosage: REGULAR USE NUMBER OF SEPARATE DOSAGES UNKNOWN
     Route: 065
     Dates: start: 20110811, end: 20110822
  27. RISEDRONATE SODIUM [Concomitant]
     Indication: OSTEOPOROSIS
     Dosage: DOSE UNKNOWN
     Route: 048
  28. LEVOFLOXACIN [Concomitant]
     Dosage: NUMBER OF SEPARATE DOSAGES UNKNOWN
     Route: 048
  29. PREDNISOLONE [Concomitant]
     Indication: LUNG DISORDER
     Dosage: REGULAR USE NUMBER OF SEPARATE DOSAGES UNKNOWN
     Route: 048
     Dates: start: 20101209, end: 20101211
  30. FAMOTIDINE [Concomitant]
     Dosage: REGULAR USE NUMBER OF SEPARATE DOSAGES UNKNOWN
     Route: 048
     Dates: start: 20110106, end: 20110111
  31. METHYLPREDNISOLONE SODIUM SUCCINATE [Concomitant]
     Dosage: REGULAR USE NUMBER OF SEPARATE DOSAGES UNKNOWN
     Route: 065
     Dates: start: 20110714, end: 20110714
  32. METHYLPREDNISOLONE SODIUM SUCCINATE [Concomitant]
     Dosage: REGULAR USE NUMBER OF SEPARATE DOSAGES UNKNOWN
     Route: 065
     Dates: start: 20110715, end: 20110725
  33. METHYLPREDNISOLONE SODIUM SUCCINATE [Concomitant]
     Dosage: REGULAR USE NUMBER OF SEPARATE DOSAGES UNKNOWN
     Route: 065
     Dates: start: 20110811, end: 20110813
  34. ROCEPHIN [Concomitant]
     Indication: PNEUMONIA
     Dosage: REGULAR USE NUMBER OF SEPARATE DOSAGES UNKNOWN
     Route: 065
     Dates: start: 20110714, end: 20110720
  35. ROCEPHIN [Concomitant]
     Dosage: REGULAR USE NUMBER OF SEPARATE DOSAGES UNKNOWN
     Route: 065
     Dates: start: 20110801, end: 20110811
  36. DIART [Concomitant]
     Indication: CARDIAC FAILURE
     Dosage: NUMBER OF SEPARATE DOSAGES UNKNOWN
     Route: 048
     Dates: start: 20110813, end: 20110816
  37. MEPTIN AIR [Concomitant]
     Indication: ASTHMA
     Dosage: DOSE UNKNOWN
     Route: 055
  38. LOXONIN [Concomitant]
     Indication: SPINAL COMPRESSION FRACTURE
     Dosage: DOSE UNKNOWN
     Route: 048
  39. ALFAROL [Concomitant]
     Indication: OSTEOPOROSIS
     Dosage: DOSE UNKNOWN
     Route: 048
  40. PREDNISOLONE [Concomitant]
     Dosage: REGULAR USE NUMBER OF SEPARATE DOSAGES UNKNOWN
     Route: 048
     Dates: start: 20110825, end: 20110905
  41. METHYLPREDNISOLONE SODIUM SUCCINATE [Concomitant]
     Indication: CHRONIC OBSTRUCTIVE PULMONARY DISEASE
     Dosage: REGULAR USE NUMBER OF SEPARATE DOSAGES UNKNOWN
     Route: 065
     Dates: start: 20110106, end: 20110106
  42. MUCOSOLVAN L [Concomitant]
     Indication: CHRONIC OBSTRUCTIVE PULMONARY DISEASE
     Dosage: DOSE UNKNOWN
     Route: 048
  43. PREDNISOLONE [Concomitant]
     Dosage: REGULAR USE NUMBER OF SEPARATE DOSAGES UNKNOWN
     Route: 048
     Dates: start: 20110816, end: 20110824
  44. METHYLPREDNISOLONE SODIUM SUCCINATE [Concomitant]
     Indication: LUNG DISORDER
     Dosage: REGULAR USE NUMBER OF SEPARATE DOSAGES UNKNOWN
     Route: 065
     Dates: start: 20110106, end: 20110106

REACTIONS (7)
  - RESPIRATORY FAILURE [None]
  - CARDIAC FAILURE [None]
  - BRONCHITIS [None]
  - CHRONIC OBSTRUCTIVE PULMONARY DISEASE [None]
  - ASTHMA [None]
  - PNEUMONIA [None]
  - LUNG DISORDER [None]
